FAERS Safety Report 17583393 (Version 1)
Quarter: 2020Q1

REPORT INFORMATION
  Report Type: Spontaneous
  Country: CA (occurrence: CA)
  Receive Date: 20200326
  Receipt Date: 20200326
  Transmission Date: 20200409
  Serious: Yes (Disabling, Other)
  Sender: FDA-Public Use
  Company Number: CA-ROCHE-2569485

PATIENT
  Age: 61 Year
  Sex: Male

DRUGS (9)
  1. XELJANZ [Concomitant]
     Active Substance: TOFACITINIB CITRATE
  2. ORENCIA [Suspect]
     Active Substance: ABATACEPT
     Indication: RHEUMATOID ARTHRITIS
     Route: 065
  3. REMICADE [Suspect]
     Active Substance: INFLIXIMAB
     Indication: RHEUMATOID ARTHRITIS
     Route: 042
  4. RITUXAN [Suspect]
     Active Substance: RITUXIMAB
     Indication: RHEUMATOID ARTHRITIS
     Route: 042
  5. ARAVA [Suspect]
     Active Substance: LEFLUNOMIDE
     Indication: RHEUMATOID ARTHRITIS
     Route: 065
  6. HUMIRA [Suspect]
     Active Substance: ADALIMUMAB
     Indication: RHEUMATOID ARTHRITIS
     Route: 058
  7. METHOTREXATE. [Suspect]
     Active Substance: METHOTREXATE
     Indication: RHEUMATOID ARTHRITIS
     Route: 058
  8. MORPHINE [Concomitant]
     Active Substance: MORPHINE
  9. ENBREL [Suspect]
     Active Substance: ETANERCEPT
     Indication: RHEUMATOID ARTHRITIS
     Route: 065

REACTIONS (13)
  - Malaise [Not Recovered/Not Resolved]
  - Contraindicated product administered [Unknown]
  - Drug hypersensitivity [Not Recovered/Not Resolved]
  - Headache [Not Recovered/Not Resolved]
  - Drug ineffective [Unknown]
  - Tooth disorder [Not Recovered/Not Resolved]
  - Disability [Not Recovered/Not Resolved]
  - Tooth fracture [Not Recovered/Not Resolved]
  - Chondropathy [Not Recovered/Not Resolved]
  - Musculoskeletal stiffness [Not Recovered/Not Resolved]
  - Weight increased [Not Recovered/Not Resolved]
  - Tooth extraction [Not Recovered/Not Resolved]
  - Sarcoidosis [Not Recovered/Not Resolved]
